FAERS Safety Report 4375652-5 (Version None)
Quarter: 2004Q2

REPORT INFORMATION
  Report Type: 
  Country: None (occurrence: None)
  Receive Date: 20040610
  Receipt Date: 20031120
  Transmission Date: 20050107
  Serious: Yes (Other)
  Sender: FDA-Public Use
  Company Number: FR-GLAXOSMITHKLINE-B0315601A

PATIENT
  Age: 57 Year
  Sex: Female
  Weight: 96 kg

DRUGS (9)
  1. AVANDIA [Suspect]
     Dosage: 4MG SEE DOSAGE TEXT
     Route: 048
     Dates: start: 20030616, end: 20031105
  2. DAONIL [Concomitant]
     Dosage: 5MG PER DAY
     Route: 048
     Dates: start: 20030915
  3. LEVOTHYROXINE SODIUM [Concomitant]
     Indication: THYROIDECTOMY
     Dosage: 125UG PER DAY
     Route: 048
  4. FENOFIBRATE [Concomitant]
     Dosage: 300MG PER DAY
     Route: 048
  5. ZESTRIL [Concomitant]
     Dosage: 1UNIT PER DAY
     Route: 048
  6. OESCLIM [Concomitant]
     Indication: HORMONE REPLACEMENT THERAPY
     Dosage: 37.5UG PER DAY
  7. FUNGIZONE [Concomitant]
  8. VASTAREL [Concomitant]
  9. DILTIAZEM [Concomitant]
     Indication: HYPERTENSION
     Dosage: 300MG PER DAY

REACTIONS (3)
  - ALOPECIA [None]
  - GLYCOSYLATED HAEMOGLOBIN INCREASED [None]
  - WEIGHT INCREASED [None]
